FAERS Safety Report 18752410 (Version 4)
Quarter: 2021Q3

REPORT INFORMATION
  Report Type: Report from Study
  Country: CO (occurrence: CO)
  Receive Date: 20210118
  Receipt Date: 20210910
  Transmission Date: 20211014
  Serious: Yes (Other)
  Sender: FDA-Public Use
  Company Number: CO-TAKEDA-2020TUS051679

PATIENT
  Age: 49 Year
  Sex: Male
  Weight: 62 kg

DRUGS (3)
  1. HUMAN IMMUNOGLOBULIN; HYALURONIDASE [Suspect]
     Active Substance: HUMAN IMMUNOGLOBULIN G\HYALURONIDASE RECOMBINANT HUMAN
     Indication: NOONAN SYNDROME
     Dosage: 40 GRAM, MONTHLY
     Route: 058
     Dates: start: 20200120
  2. HUMAN IMMUNOGLOBULIN; HYALURONIDASE [Suspect]
     Active Substance: HUMAN IMMUNOGLOBULIN G\HYALURONIDASE RECOMBINANT HUMAN
     Indication: PRIMARY IMMUNODEFICIENCY SYNDROME
     Dosage: 100 MILLIGRAM
     Route: 065
     Dates: start: 20200120
  3. HUMAN IMMUNOGLOBULIN; HYALURONIDASE [Suspect]
     Active Substance: HUMAN IMMUNOGLOBULIN G\HYALURONIDASE RECOMBINANT HUMAN
     Dosage: 40 GRAM, MONTHLY
     Route: 042
     Dates: start: 20200120

REACTIONS (9)
  - Feeling of despair [Recovering/Resolving]
  - Pyrexia [Recovered/Resolved]
  - Incorrect route of product administration [Unknown]
  - Respiratory tract infection [Recovering/Resolving]
  - Chills [Recovered/Resolved]
  - Product dose omission issue [Recovering/Resolving]
  - COVID-19 [Recovering/Resolving]
  - Fatigue [Recovered/Resolved]
  - Product dispensing error [Unknown]

NARRATIVE: CASE EVENT DATE: 20201112
